FAERS Safety Report 17869071 (Version 1)
Quarter: 2020Q2

REPORT INFORMATION
  Report Type: Other
  Country: CA (occurrence: CA)
  Receive Date: 20200608
  Receipt Date: 20200608
  Transmission Date: 20200714
  Serious: Yes (Hospitalization, Other)
  Sender: FDA-Public Use
  Company Number: CA-APOTEX-2020AP011424

PATIENT
  Age: 69 Year
  Sex: Male
  Weight: 121 kg

DRUGS (3)
  1. REVLIMID [Suspect]
     Active Substance: LENALIDOMIDE
     Indication: STEM CELL TRANSPLANT
     Dosage: 10 MG, QD
     Route: 048
  2. BUSULFAN. [Suspect]
     Active Substance: BUSULFAN
     Indication: STEM CELL TRANSPLANT
     Dosage: UNK
     Route: 065
  3. MELPHALAN. [Suspect]
     Active Substance: MELPHALAN
     Indication: STEM CELL TRANSPLANT
     Dosage: UNK
     Route: 065

REACTIONS (3)
  - Adenosquamous cell lung cancer [Not Recovered/Not Resolved]
  - Pneumonia [Not Recovered/Not Resolved]
  - Pulmonary embolism [Not Recovered/Not Resolved]
